FAERS Safety Report 6591150-2 (Version None)
Quarter: 2010Q1

REPORT INFORMATION
  Report Type: 
  Country: None (occurrence: None)
  Receive Date: 20100219
  Receipt Date: 20090911
  Transmission Date: 20100710
  Serious: No
  Sender: FDA-Public Use
  Company Number: US-BRISTOL-MYERS SQUIBB COMPANY-14762892

PATIENT
  Age: 74 Year
  Sex: Female
  Weight: 51 kg

DRUGS (14)
  1. KENALOG [Suspect]
     Indication: OSTEOARTHRITIS
     Dosage: 2ND INJECTION ON 5MAY09 120MG:05MAY09
     Route: 014
     Dates: start: 20090428
  2. LIDOCAINE [Suspect]
     Dosage: LIDOCAINE 1% PLAIN 5CC IN EACH INJECTION 2ND INJ ON 5MAY2009
     Route: 014
     Dates: start: 20090428
  3. PREMARIN [Concomitant]
  4. XALATAN [Concomitant]
  5. FISH OIL [Concomitant]
  6. VITAMIN D [Concomitant]
  7. VITAMIN B COMPLEX CAP [Concomitant]
  8. MULTI-VITAMIN [Concomitant]
  9. VITAMIN B-12 [Concomitant]
  10. GLUCOSAMINE [Concomitant]
  11. CALCIUM [Concomitant]
  12. FERROUS FUMARATE [Concomitant]
  13. ST JOHN WORT [Concomitant]
  14. TYLENOL-500 [Concomitant]

REACTIONS (3)
  - OEDEMA PERIPHERAL [None]
  - PURPURA [None]
  - SWELLING FACE [None]
